FAERS Safety Report 10413393 (Version 2)
Quarter: 2014Q3

REPORT INFORMATION
  Report Type: Spontaneous
  Country: SE (occurrence: SE)
  Receive Date: 20140827
  Receipt Date: 20140909
  Transmission Date: 20150326
  Serious: Yes (Other)
  Sender: FDA-Public Use
  Company Number: CHPA2014SE010983

PATIENT
  Sex: Female

DRUGS (1)
  1. NICOTINELL [Suspect]
     Active Substance: NICOTINE
     Dosage: 2 MG, UNK
     Route: 065

REACTIONS (12)
  - Drug dependence [Unknown]
  - Pruritus [Recovering/Resolving]
  - Incorrect drug administration duration [Unknown]
  - Pharyngeal erythema [Recovering/Resolving]
  - Hypersensitivity [Recovering/Resolving]
  - Throat irritation [Recovering/Resolving]
  - Eye swelling [Recovering/Resolving]
  - Drug withdrawal syndrome [Recovered/Resolved]
  - Urticaria [Recovering/Resolving]
  - Lip swelling [Recovering/Resolving]
  - Pharyngeal oedema [Recovering/Resolving]
  - Ocular hyperaemia [Recovering/Resolving]

NARRATIVE: CASE EVENT DATE: 201405
